FAERS Safety Report 21469098 (Version 4)
Quarter: 2022Q4

REPORT INFORMATION
  Report Type: Report from Study
  Country: KR (occurrence: KR)
  Receive Date: 20221018
  Receipt Date: 20221103
  Transmission Date: 20230113
  Serious: Yes (Hospitalization, Other)
  Sender: FDA-Public Use
  Company Number: KR-ABBVIE-4156919

PATIENT
  Sex: Male
  Weight: 48 kg

DRUGS (5)
  1. RINVOQ [Suspect]
     Active Substance: UPADACITINIB
     Indication: Rheumatoid arthritis
     Route: 048
     Dates: start: 20220330, end: 2022
  2. RINVOQ [Suspect]
     Active Substance: UPADACITINIB
     Indication: Rheumatoid arthritis
     Route: 048
     Dates: start: 20220725
  3. csDMARDs-Sulfasalazine (Azulfidine) 1000mg [Concomitant]
     Indication: Product used for unknown indication
     Dates: start: 20211124
  4. Steroids-Prednisolone 5mg [Concomitant]
     Indication: Product used for unknown indication
     Dates: start: 20210911
  5. csDMARDs-Methotrexate (Rheumatrex. Folex) 17.5mg [Concomitant]
     Indication: Product used for unknown indication
     Dates: start: 20210911

REACTIONS (1)
  - Pneumothorax spontaneous [Recovered/Resolved]

NARRATIVE: CASE EVENT DATE: 20220630
